FAERS Safety Report 15005587 (Version 1)
Quarter: 2018Q2

REPORT INFORMATION
  Report Type: Spontaneous
  Country: US (occurrence: US)
  Receive Date: 20180521
  Receipt Date: 20180521
  Transmission Date: 20180711
  Serious: Yes (Hospitalization)
  Sender: FDA-Public Use
  Company Number: None

PATIENT
  Age: 88 Year
  Sex: Female
  Weight: 80.3 kg

DRUGS (11)
  1. HUMALOG [Suspect]
     Active Substance: INSULIN LISPRO
     Indication: DIABETES MELLITUS
     Dosage: CHRONIC   DATES OF USE
  2. ECOTRIN [Concomitant]
     Active Substance: ASPIRIN
  3. TAMIFLU [Concomitant]
     Active Substance: OSELTAMIVIR PHOSPHATE
  4. COLACE [Concomitant]
     Active Substance: DOCUSATE SODIUM
  5. IMDUR [Concomitant]
     Active Substance: ISOSORBIDE MONONITRATE
  6. AMLODIPINE [Concomitant]
     Active Substance: AMLODIPINE BESYLATE
  7. AMARYL [Suspect]
     Active Substance: GLIMEPIRIDE
     Indication: DIABETES MELLITUS
     Dosage: CHRONIC   DATES OF USE
  8. BISACODYL. [Concomitant]
     Active Substance: BISACODYL
  9. COREG [Concomitant]
     Active Substance: CARVEDILOL
  10. LEVAQUIN [Concomitant]
     Active Substance: LEVOFLOXACIN
  11. CA + VIT D [Concomitant]

REACTIONS (7)
  - Renal impairment [None]
  - Influenza [None]
  - Pneumonia [None]
  - Glycosylated haemoglobin increased [None]
  - Hypophagia [None]
  - Hypoglycaemia [None]
  - Dehydration [None]

NARRATIVE: CASE EVENT DATE: 20180104
